FAERS Safety Report 20405200 (Version 1)
Quarter: 2022Q1

REPORT INFORMATION
  Report Type: Report from Study
  Country: US (occurrence: US)
  Receive Date: 20220131
  Receipt Date: 20220131
  Transmission Date: 20220423
  Serious: Yes (Hospitalization, Other)
  Sender: FDA-Public Use
  Company Number: US-TAKEDA-US201916200

PATIENT
  Age: 43 Year
  Sex: Female
  Weight: 40.363 kg

DRUGS (22)
  1. TEDUGLUTIDE [Suspect]
     Active Substance: TEDUGLUTIDE
     Indication: Short-bowel syndrome
     Dosage: 5.0 MILLIGRAM, 0.05 MG/KG, 7 DOSES PER WEEK
     Route: 065
     Dates: start: 20150101, end: 20190412
  2. TEDUGLUTIDE [Suspect]
     Active Substance: TEDUGLUTIDE
     Indication: Short-bowel syndrome
     Dosage: 5.0 MILLIGRAM, 0.05 MG/KG, 7 DOSES PER WEEK
     Route: 065
     Dates: start: 20150101, end: 20190412
  3. TEDUGLUTIDE [Suspect]
     Active Substance: TEDUGLUTIDE
     Indication: Short-bowel syndrome
     Dosage: 5.0 MILLIGRAM, 0.05 MG/KG, 7 DOSES PER WEEK
     Route: 065
     Dates: start: 20150101, end: 20190412
  4. TEDUGLUTIDE [Suspect]
     Active Substance: TEDUGLUTIDE
     Indication: Short-bowel syndrome
     Dosage: 5.0 MILLIGRAM, 0.05 MG/KG, 7 DOSES PER WEEK
     Route: 065
     Dates: start: 20150101, end: 20190412
  5. MORPHINE [Concomitant]
     Active Substance: MORPHINE
     Indication: Hypomagnesaemia
  6. MAGNESIUM SULFATE [Concomitant]
     Active Substance: MAGNESIUM SULFATE
     Indication: Hypomagnesaemia
     Dosage: 2 GRAM, SINGLE
     Route: 042
     Dates: start: 20190306, end: 20190306
  7. MAGNESIUM SULFATE [Concomitant]
     Active Substance: MAGNESIUM SULFATE
     Indication: Electrolyte imbalance
  8. KETOROLAC [Concomitant]
     Active Substance: KETOROLAC TROMETHAMINE
     Indication: Hypomagnesaemia
     Dosage: 30 MILLIGRAM, SINGLE
     Route: 042
     Dates: start: 20190306, end: 20190306
  9. KETOROLAC [Concomitant]
     Active Substance: KETOROLAC TROMETHAMINE
     Indication: Electrolyte imbalance
  10. DIPHENHYDRAMINE [Concomitant]
     Active Substance: DIPHENHYDRAMINE
     Indication: Hypomagnesaemia
  11. ACETAMINOPHEN AND CODEINE [Concomitant]
     Active Substance: ACETAMINOPHEN\CODEINE PHOSPHATE
     Indication: Product used for unknown indication
  12. IMURAN [Concomitant]
     Active Substance: AZATHIOPRINE
     Indication: Crohn^s disease
  13. CHOLECALCIFEROL [Concomitant]
     Active Substance: CHOLECALCIFEROL
     Indication: Product used for unknown indication
  14. KLONOPIN [Concomitant]
     Active Substance: CLONAZEPAM
     Indication: Product used for unknown indication
  15. LEXAPRO [Concomitant]
     Active Substance: ESCITALOPRAM OXALATE
     Indication: Product used for unknown indication
  16. HEPARIN SODIUM [Concomitant]
     Active Substance: HEPARIN SODIUM
     Indication: Coagulopathy
  17. MAGNESIUM GLYCINATE [Concomitant]
     Active Substance: MAGNESIUM GLYCINATE
     Indication: Product used for unknown indication
  18. POTASSIUM CHLORIDE [Concomitant]
     Active Substance: POTASSIUM CHLORIDE
     Indication: Electrolyte imbalance
     Dosage: 20 UNK, SINGLE
     Route: 042
     Dates: start: 20190306, end: 20190306
  19. REMICADE [Concomitant]
     Active Substance: INFLIXIMAB
     Indication: Product used for unknown indication
  20. SODIUM CHLORIDE [Concomitant]
     Active Substance: SODIUM CHLORIDE
     Indication: Ventricular assist device insertion
  21. SODIUM CHLORIDE [Concomitant]
     Active Substance: SODIUM CHLORIDE
     Indication: Dehydration
     Dosage: 500.00 MILLILITER, SINGLE
     Route: 042
     Dates: start: 20190306, end: 20190306
  22. SODIUM CHLORIDE [Concomitant]
     Active Substance: SODIUM CHLORIDE
     Indication: Electrolyte imbalance

REACTIONS (3)
  - Pyelonephritis acute [Recovered/Resolved]
  - Dehydration [Recovered/Resolved]
  - Hypomagnesaemia [Recovered/Resolved]

NARRATIVE: CASE EVENT DATE: 20181115
